FAERS Safety Report 4315168-5 (Version None)
Quarter: 2004Q1

REPORT INFORMATION
  Report Type: 
  Country: None (occurrence: None)
  Receive Date: 20040310
  Receipt Date: 20040225
  Transmission Date: 20041129
  Serious: Yes (Death, Hospitalization)
  Sender: FDA-Public Use
  Company Number: US-JNJFOC-20030903697

PATIENT
  Age: 86 Year
  Sex: Female

DRUGS (6)
  1. REMICADE [Suspect]
     Indication: RHEUMATOID ARTHRITIS
     Dosage: INTRAVENOUS
     Route: 042
     Dates: start: 20010101
  2. PROPOXY (DEXTROPROPOXYPHENE) [Concomitant]
  3. AMITRYPTYLIN (AMITRIPTYLINE) [Concomitant]
  4. NORVASC [Concomitant]
  5. ATENOLOL [Concomitant]
  6. ASPIRIN [Concomitant]

REACTIONS (17)
  - ACID FAST STAIN POSITIVE [None]
  - AMNESIA [None]
  - ANOREXIA [None]
  - ARTHRITIS [None]
  - ERYTHEMA [None]
  - FUNGAL RASH [None]
  - GAIT DISTURBANCE [None]
  - HEPATITIS [None]
  - HERPES ZOSTER [None]
  - INCONTINENCE [None]
  - INTERVERTEBRAL DISC PROTRUSION [None]
  - POST HERPETIC NEURALGIA [None]
  - RESPIRATORY FAILURE [None]
  - SPINAL COLUMN STENOSIS [None]
  - SPONDYLOSIS [None]
  - TUBERCULOSIS [None]
  - WEIGHT DECREASED [None]
